FAERS Safety Report 10444758 (Version 3)
Quarter: 2015Q1

REPORT INFORMATION
  Report Type: Spontaneous
  Country: US (occurrence: US)
  Receive Date: 20140910
  Receipt Date: 20150216
  Transmission Date: 20150720
  Serious: Yes (Death, Hospitalization, Other)
  Sender: FDA-Public Use
  Company Number: US-MERCK-1409USA004494

PATIENT
  Sex: Male
  Weight: 79.82 kg

DRUGS (1)
  1. JANUVIA [Suspect]
     Active Substance: SITAGLIPTIN PHOSPHATE
     Indication: TYPE 2 DIABETES MELLITUS
     Dosage: 100 MG, QD
     Route: 048
     Dates: start: 20130114, end: 20130718

REACTIONS (29)
  - Pancreatic carcinoma metastatic [Fatal]
  - Septic embolus [Unknown]
  - Hyperbilirubinaemia [Recovered/Resolved]
  - Dyslipidaemia [Unknown]
  - Chest pain [Unknown]
  - Back pain [Unknown]
  - Spinal osteoarthritis [Unknown]
  - Ascites [Unknown]
  - Bladder operation [Unknown]
  - Leukopenia [Recovering/Resolving]
  - Chronic obstructive pulmonary disease [Unknown]
  - Cholecystitis acute [Unknown]
  - Anaemia [Unknown]
  - Thrombocytopenia [Recovering/Resolving]
  - Pneumonia [Unknown]
  - Bile duct stent insertion [Unknown]
  - Metastases to lung [Unknown]
  - Sepsis [Unknown]
  - Peripheral vascular disorder [Unknown]
  - Osteoarthritis [Unknown]
  - Pancreatitis chronic [Not Recovered/Not Resolved]
  - Wound [Unknown]
  - Varicocele [Unknown]
  - Aortic aneurysm [Unknown]
  - Cellulitis [Unknown]
  - Pancreatitis acute [Unknown]
  - Coronary artery disease [Unknown]
  - Diabetic neuropathy [Unknown]
  - Hypoglycaemia [Unknown]

NARRATIVE: CASE EVENT DATE: 2013
